FAERS Safety Report 10154397 (Version 1)
Quarter: 2014Q2

REPORT INFORMATION
  Report Type: Spontaneous
  Country: US (occurrence: US)
  Receive Date: 20140506
  Receipt Date: 20140506
  Transmission Date: 20141212
  Serious: No
  Sender: FDA-Public Use
  Company Number: US-PFIZER INC-2014121987

PATIENT
  Sex: Female

DRUGS (9)
  1. ZOLOFT [Suspect]
     Dosage: UNK
  2. ATARAX [Suspect]
     Dosage: UNK
  3. BENADRYL [Suspect]
     Dosage: UNK
  4. PERCOCET [Suspect]
     Dosage: UNK
  5. Z-PAK [Suspect]
     Dosage: UNK
  6. CODEINE [Suspect]
     Dosage: UNK
  7. ASA [Suspect]
     Dosage: UNK
  8. DEMEROL [Suspect]
     Dosage: UNK
  9. DARVON [Suspect]
     Dosage: UNK

REACTIONS (1)
  - Drug hypersensitivity [Unknown]
